FAERS Safety Report 4713603-1 (Version None)
Quarter: 2005Q3

REPORT INFORMATION
  Report Type: 
  Country: None (occurrence: None)
  Receive Date: 20050711
  Receipt Date: 20050628
  Transmission Date: 20060218
  Serious: Yes (Hospitalization)
  Sender: FDA-Public Use
  Company Number: 2005093908

PATIENT
  Age: 82 Year
  Sex: Female

DRUGS (10)
  1. AROMASIN [Suspect]
     Indication: ILL-DEFINED DISORDER
     Dosage: 25 MG (25 MG, DAILY),ORAL
     Route: 048
     Dates: start: 20040401
  2. FUROSEMIDE [Suspect]
     Indication: ILL-DEFINED DISORDER
     Dosage: 40 MG (DAILY),ORAL
     Route: 048
  3. PAROXETINE HCL [Suspect]
     Indication: ILL-DEFINED DISORDER
     Dosage: ONE DOSE FORM (DAILY),ORAL
     Route: 048
     Dates: start: 20030101
  4. CLODRONIC ACID (CLODRONIC ACID) [Suspect]
     Indication: ILL-DEFINED DISORDER
     Dosage: 1 GRAM (DAILY), ORAL
     Route: 048
     Dates: start: 20040401
  5. CLOPIDOGREL BISULFATE [Suspect]
     Indication: ILL-DEFINED DISORDER
     Dosage: ONE DOSE FORM (DAILY), ORAL
     Route: 048
     Dates: start: 20030101
  6. AROMASIN [Concomitant]
  7. FUROSEMIDE [Concomitant]
  8. PAROXETINE HCL [Concomitant]
  9. CLODRONIC ACID (CLODRONIC ACID) [Concomitant]
  10. CLOPIDOGREL BISULFATE [Concomitant]

REACTIONS (8)
  - ASPARTATE AMINOTRANSFERASE INCREASED [None]
  - BLOOD CREATINE PHOSPHOKINASE INCREASED [None]
  - BLOOD PRESSURE SYSTOLIC INCREASED [None]
  - CLUMSINESS [None]
  - DISORIENTATION [None]
  - ECCHYMOSIS [None]
  - FALL [None]
  - PERIORBITAL HAEMATOMA [None]
